FAERS Safety Report 9774768 (Version 1)
Quarter: 2013Q4

REPORT INFORMATION
  Report Type: Spontaneous
  Country: US (occurrence: None)
  Receive Date: 20131219
  Receipt Date: 20131219
  Transmission Date: 20140711
  Serious: Yes (Death, Life-Threatening, Hospitalization)
  Sender: FDA-Public Use
  Company Number: None

PATIENT
  Age: 82 Year
  Sex: Male

DRUGS (1)
  1. HALDOL [Suspect]

REACTIONS (4)
  - Stupor [None]
  - Respiratory arrest [None]
  - Consciousness fluctuating [None]
  - Agitation [None]
